FAERS Safety Report 6665544-0 (Version None)
Quarter: 2010Q2

REPORT INFORMATION
  Report Type: 
  Country: None (occurrence: None)
  Receive Date: 20100402
  Receipt Date: 20100324
  Transmission Date: 20101027
  Serious: Yes (Other)
  Sender: FDA-Public Use
  Company Number: JP-SANOFI-AVENTIS-2010SA017399

PATIENT
  Age: 62 Year
  Sex: Male

DRUGS (3)
  1. FUROSEMIDE [Suspect]
     Route: 065
  2. SODIUM CHLORIDE/WATER [Concomitant]
  3. NATRIX [Concomitant]
     Indication: HYPERTENSION
     Route: 048

REACTIONS (2)
  - OSMOTIC DEMYELINATION SYNDROME [None]
  - PARKINSONISM [None]
